FAERS Safety Report 4707917-9 (Version None)
Quarter: 2005Q3

REPORT INFORMATION
  Report Type: 
  Country: None (occurrence: None)
  Receive Date: 20050707
  Receipt Date: 20040908
  Transmission Date: 20060218
  Serious: No
  Sender: FDA-Public Use
  Company Number: US-BRISTOL-MYERS SQUIBB COMPANY-12696282

PATIENT
  Age: 64 Year
  Sex: Male
  Weight: 81 kg

DRUGS (6)
  1. VASODILAN [Suspect]
     Indication: INFERTILITY MALE
     Dosage: TAKING EXPIRED LOT FOR 26 DAYS
     Route: 048
  2. URECHOLINE [Concomitant]
  3. NIASPAN [Concomitant]
  4. OMEGA 3 FATTY ACID [Concomitant]
  5. LAMISIL [Concomitant]
  6. LIPITOR [Concomitant]

REACTIONS (1)
  - MALAISE [None]
